FAERS Safety Report 12826712 (Version 2)
Quarter: 2017Q1

REPORT INFORMATION
  Report Type: Spontaneous
  Country: US (occurrence: US)
  Receive Date: 20161006
  Receipt Date: 20170124
  Transmission Date: 20170428
  Serious: Yes (Hospitalization)
  Sender: FDA-Public Use
  Company Number: US-ELI_LILLY_AND_COMPANY-US201609011725

PATIENT
  Age: 67 Year
  Sex: Male

DRUGS (5)
  1. HUMALOG [Suspect]
     Active Substance: INSULIN LISPRO
     Dosage: 4 U, TID BEFORE MEALS
     Route: 058
     Dates: start: 20160517
  2. HUMALOG [Suspect]
     Active Substance: INSULIN LISPRO
     Dosage: UNK UNK, PRN
     Route: 065
     Dates: start: 2013
  3. HUMALOG [Suspect]
     Active Substance: INSULIN LISPRO
     Indication: TYPE 1 DIABETES MELLITUS
     Dosage: UNK UNK, PRN
     Route: 065
  4. HUMALOG [Suspect]
     Active Substance: INSULIN LISPRO
     Dosage: UNK UNK, PRN
     Route: 058
     Dates: start: 2013
  5. HUMALOG [Suspect]
     Active Substance: INSULIN LISPRO
     Dosage: UNK UNK, PRN
     Route: 065

REACTIONS (21)
  - Craniocerebral injury [Unknown]
  - Hypoglycaemia [Recovering/Resolving]
  - Mobility decreased [Recovering/Resolving]
  - Haemorrhage [Recovering/Resolving]
  - Renal failure [Unknown]
  - Arthralgia [Unknown]
  - Cognitive disorder [Recovering/Resolving]
  - Hypoglycaemia [Unknown]
  - Tibia fracture [Recovering/Resolving]
  - Muscle atrophy [Unknown]
  - Cellulitis [Unknown]
  - Incorrect dose administered [Unknown]
  - Road traffic accident [Recovering/Resolving]
  - Hypoglycaemic unconsciousness [Recovering/Resolving]
  - Head injury [Unknown]
  - Spinal osteoarthritis [Unknown]
  - Mental status changes [Unknown]
  - Anaemia [Unknown]
  - Confusional state [Recovering/Resolving]
  - Neck pain [Unknown]
  - Blood glucose increased [Unknown]

NARRATIVE: CASE EVENT DATE: 20160428
